FAERS Safety Report 10416684 (Version 1)
Quarter: 2014Q3

REPORT INFORMATION
  Report Type: Spontaneous
  Country: US (occurrence: US)
  Receive Date: 20140828
  Receipt Date: 20140828
  Transmission Date: 20150326
  Serious: No
  Sender: FDA-Public Use
  Company Number: US-MYLAN-2013S1026204

PATIENT
  Sex: Female

DRUGS (2)
  1. LIOTHYRONINE SODIUM TABLETS, USP [Suspect]
     Active Substance: LIOTHYRONINE SODIUM
     Dosage: 25 ?G,QID
     Route: 048
  2. LIOTHYRONINE SODIUM TABLETS, USP [Suspect]
     Active Substance: LIOTHYRONINE SODIUM
     Dosage: 12.5 ?G,QID
     Route: 048

REACTIONS (2)
  - Reaction to drug excipients [Not Recovered/Not Resolved]
  - Abdominal discomfort [Not Recovered/Not Resolved]
